FAERS Safety Report 7183129-7 (Version None)
Quarter: 2010Q4

REPORT INFORMATION
  Report Type: 
  Country: None (occurrence: None)
  Receive Date: 20101220
  Receipt Date: 20101220
  Transmission Date: 20110411
  Serious: Yes (Life-Threatening)
  Sender: FDA-Public Use
  Company Number: None

PATIENT
  Sex: Female
  Weight: 85 kg

DRUGS (4)
  1. CAMPATH [Suspect]
     Indication: PROPHYLAXIS AGAINST TRANSPLANT REJECTION
     Dosage: 0.4 MG/KG, IV, ONE DOSE
     Route: 042
     Dates: start: 20071209
  2. TACROLIMUS [Suspect]
     Indication: PROPHYLAXIS AGAINST TRANSPLANT REJECTION
     Dosage: ENTERALLY
     Dates: start: 20071209
  3. PREDNISONE [Concomitant]
  4. . [Concomitant]

REACTIONS (3)
  - BURKITT'S LYMPHOMA [None]
  - HEPATIC LESION [None]
  - PANCREATITIS [None]
